FAERS Safety Report 5135598-1 (Version None)
Quarter: 2006Q4

REPORT INFORMATION
  Report Type: 
  Country: None (occurrence: None)
  Receive Date: 20061020
  Receipt Date: 20060809
  Transmission Date: 20070319
  Serious: Yes (Death)
  Sender: FDA-Public Use
  Company Number: S06-USA-04294-01

PATIENT
  Age: 17 Year
  Sex: Male
  Weight: 104.3273 kg

DRUGS (1)
  1. LEXAPRO [Suspect]
     Indication: DEPRESSION
     Dates: start: 20040617, end: 20040726

REACTIONS (6)
  - AGGRESSION [None]
  - COMPLETED SUICIDE [None]
  - GUN SHOT WOUND [None]
  - HEAD INJURY [None]
  - INTENTIONAL SELF-INJURY [None]
  - PHYSICAL ASSAULT [None]
